FAERS Safety Report 4868085-6 (Version None)
Quarter: 2005Q4

REPORT INFORMATION
  Report Type: 
  Country: None (occurrence: None)
  Receive Date: 20051229
  Receipt Date: 20051221
  Transmission Date: 20060501
  Serious: Yes (Hospitalization)
  Sender: FDA-Public Use
  Company Number: JP-JNJFOC-20051205415

PATIENT
  Age: 83 Year
  Sex: Female

DRUGS (2)
  1. CRAVIT [Suspect]
     Indication: PYELONEPHRITIS
     Route: 048
     Dates: start: 20051215, end: 20051220
  2. TAKEPRON [Concomitant]
     Route: 048

REACTIONS (1)
  - DEPRESSED LEVEL OF CONSCIOUSNESS [None]
